FAERS Safety Report 23232646 (Version 2)
Quarter: 2023Q4

REPORT INFORMATION
  Report Type: Report from Study
  Country: US (occurrence: US)
  Receive Date: 20231128
  Receipt Date: 20231206
  Transmission Date: 20240110
  Serious: Yes (Other)
  Sender: FDA-Public Use
  Company Number: US-ABBVIE-5508759

PATIENT
  Age: 69 Year
  Sex: Female

DRUGS (4)
  1. LINZESS [Suspect]
     Active Substance: LINACLOTIDE
     Indication: Product used for unknown indication
     Dosage: 290 MICROGRAM
     Route: 048
  2. LINZESS [Suspect]
     Active Substance: LINACLOTIDE
     Indication: Product used for unknown indication
     Dosage: LOWER DOSE
     Route: 048
     Dates: start: 202206
  3. CARBOPLATIN [Suspect]
     Active Substance: CARBOPLATIN
     Indication: Chemotherapy
     Route: 065
     Dates: end: 20231121
  4. GEMCITABINE [Suspect]
     Active Substance: GEMCITABINE
     Indication: Ovarian cancer
     Route: 065
     Dates: end: 20231121

REACTIONS (13)
  - Surgery [Unknown]
  - Diarrhoea [Unknown]
  - Constipation [Unknown]
  - Malaise [Recovering/Resolving]
  - Unevaluable event [Not Recovered/Not Resolved]
  - Adverse drug reaction [Not Recovered/Not Resolved]
  - Mood altered [Not Recovered/Not Resolved]
  - Adverse drug reaction [Unknown]
  - Adhesion [Unknown]
  - Adhesion [Unknown]
  - Malaise [Recovering/Resolving]
  - Brain fog [Unknown]
  - Gastrointestinal disorder [Unknown]

NARRATIVE: CASE EVENT DATE: 20230601
